FAERS Safety Report 14753721 (Version 1)
Quarter: 2018Q2

REPORT INFORMATION
  Report Type: Spontaneous
  Country: PL (occurrence: PL)
  Receive Date: 20180412
  Receipt Date: 20180412
  Transmission Date: 20180711
  Serious: Yes (Hospitalization)
  Sender: FDA-Public Use
  Company Number: PL-ASTELLAS-2016US023322

PATIENT
  Age: 77 Year
  Sex: Male

DRUGS (1)
  1. VESICARE [Suspect]
     Active Substance: SOLIFENACIN SUCCINATE
     Indication: PRODUCT USED FOR UNKNOWN INDICATION
     Dosage: 5 MG, ONCE DAILY (10 MG DIVIDED INTO THE HALF-RECOMMENDATION FROM PHYSICIAN)
     Route: 065

REACTIONS (2)
  - Urine flow decreased [Recovered/Resolved]
  - Intentional product misuse [Unknown]
